FAERS Safety Report 22008404 (Version 1)
Quarter: 2023Q1

REPORT INFORMATION
  Report Type: Spontaneous
  Country: US (occurrence: US)
  Receive Date: 20230219
  Receipt Date: 20230219
  Transmission Date: 20230418
  Serious: Yes (Death)
  Sender: FDA-Public Use
  Company Number: US-SPECGX-T202300156

PATIENT
  Age: 36 Year
  Sex: Female

DRUGS (3)
  1. DEXTROAMPHET SACCHARAT, AMPHET ASPARTATE, DEXTROAMPHET SULFATE AND AMP [Suspect]
     Active Substance: AMPHETAMINE ASPARTATE\AMPHETAMINE SULFATE\DEXTROAMPHETAMINE SACCHARATE\DEXTROAMPHETAMINE SULFATE
     Indication: Product used for unknown indication
     Dosage: UNK
     Route: 065
  2. IBOGAINE [Suspect]
     Active Substance: IBOGAINE
     Indication: Product used for unknown indication
     Dosage: 4 GRAM
     Route: 048
  3. MIDOMAFETAMINE [Suspect]
     Active Substance: MIDOMAFETAMINE
     Indication: Product used for unknown indication
     Dosage: UNK
     Route: 065

REACTIONS (13)
  - Unresponsive to stimuli [Fatal]
  - Pulseless electrical activity [Fatal]
  - Myoclonus [Fatal]
  - Ventricular fibrillation [Fatal]
  - Torsade de pointes [Fatal]
  - Pneumonia aspiration [Fatal]
  - Hyperhidrosis [Fatal]
  - Nystagmus [Fatal]
  - Ischaemia [Fatal]
  - Ventricular tachycardia [Fatal]
  - Hypertension [Fatal]
  - Substance use [Fatal]
  - Intentional product misuse [Fatal]

NARRATIVE: CASE EVENT DATE: 20210101
